FAERS Safety Report 21147964 (Version 1)
Quarter: 2022Q3

REPORT INFORMATION
  Report Type: Spontaneous
  Country: FR (occurrence: FR)
  Receive Date: 20220729
  Receipt Date: 20220729
  Transmission Date: 20221027
  Serious: Yes (Hospitalization)
  Sender: FDA-Public Use
  Company Number: None

PATIENT
  Age: 82 Year
  Sex: Male

DRUGS (19)
  1. VALIUM [Suspect]
     Active Substance: DIAZEPAM
     Indication: Senile dementia
     Dosage: STRENGTH REPORTED AS 2MG/5ML
     Route: 050
     Dates: start: 20050917, end: 20050928
  2. VALIUM [Suspect]
     Active Substance: DIAZEPAM
     Indication: Confusional state
     Dates: start: 20050917, end: 20050928
  3. ZOLPIDEM TARTRATE [Suspect]
     Active Substance: ZOLPIDEM TARTRATE
     Indication: Senile dementia
     Route: 050
     Dates: start: 20050802, end: 200509
  4. ZOLPIDEM TARTRATE [Suspect]
     Active Substance: ZOLPIDEM TARTRATE
     Indication: Confusional state
     Dates: start: 200509
  5. ZOLPIDEM TARTRATE [Suspect]
     Active Substance: ZOLPIDEM TARTRATE
     Indication: Confusional state
     Route: 050
     Dates: start: 20050802, end: 200509
  6. ZOLPIDEM TARTRATE [Suspect]
     Active Substance: ZOLPIDEM TARTRATE
     Indication: Senile dementia
     Dates: start: 200509
  7. CLOZAPINE [Suspect]
     Active Substance: CLOZAPINE
     Indication: Confusional state
     Route: 050
     Dates: start: 20050802, end: 200509
  8. CLOZAPINE [Suspect]
     Active Substance: CLOZAPINE
     Indication: Senile dementia
     Route: 050
     Dates: start: 20050802, end: 200509
  9. CLOZAPINE [Suspect]
     Active Substance: CLOZAPINE
     Indication: Senile dementia
     Dates: start: 200509
  10. CLOZAPINE [Suspect]
     Active Substance: CLOZAPINE
     Indication: Confusional state
     Dates: start: 200509
  11. SEROPRAM (CITALOPRAM HYDROBROMIDE) [Suspect]
     Active Substance: CITALOPRAM HYDROBROMIDE
     Indication: Confusional state
     Route: 050
     Dates: start: 20050802, end: 200509
  12. SEROPRAM (CITALOPRAM HYDROBROMIDE) [Suspect]
     Active Substance: CITALOPRAM HYDROBROMIDE
     Indication: Senile dementia
     Dates: start: 200509
  13. SEROPRAM (CITALOPRAM HYDROBROMIDE) [Suspect]
     Active Substance: CITALOPRAM HYDROBROMIDE
     Indication: Confusional state
     Dates: start: 200509
  14. LORMETAZEPAM [Suspect]
     Active Substance: LORMETAZEPAM
     Indication: Senile dementia
     Route: 050
     Dates: start: 20050923, end: 20050928
  15. LORMETAZEPAM [Suspect]
     Active Substance: LORMETAZEPAM
     Indication: Confusional state
     Route: 050
     Dates: start: 20050923, end: 20050928
  16. CASODEX [Suspect]
     Active Substance: BICALUTAMIDE
     Indication: Product used for unknown indication
  17. SEROPRAM (CITALOPRAM HYDROBROMIDE) [Suspect]
     Active Substance: CITALOPRAM HYDROBROMIDE
     Indication: Senile dementia
     Route: 050
     Dates: start: 20050802, end: 200509
  18. XANAX [Concomitant]
     Active Substance: ALPRAZOLAM
     Indication: Confusional state
     Route: 050
     Dates: start: 20050928
  19. XANAX [Concomitant]
     Active Substance: ALPRAZOLAM
     Indication: Senile dementia
     Route: 050
     Dates: start: 20050928

REACTIONS (5)
  - Cognitive disorder [Unknown]
  - Hallucination [Unknown]
  - Meningitis aseptic [Recovered/Resolved with Sequelae]
  - Myoclonus [Unknown]
  - Condition aggravated [Unknown]

NARRATIVE: CASE EVENT DATE: 20050928
